FAERS Safety Report 21026577 (Version 1)
Quarter: 2022Q2

REPORT INFORMATION
  Report Type: Spontaneous
  Country: US (occurrence: US)
  Receive Date: 20220630
  Receipt Date: 20220630
  Transmission Date: 20220720
  Serious: No
  Sender: FDA-Public Use
  Company Number: US-VIIV HEALTHCARE LIMITED-US2022096846

PATIENT
  Age: 71 Year
  Sex: Male

DRUGS (1)
  1. SELZENTRY [Suspect]
     Active Substance: MARAVIROC
     Indication: HIV infection
     Dosage: 300 MG, BID

REACTIONS (1)
  - Product dose omission issue [Not Recovered/Not Resolved]

NARRATIVE: CASE EVENT DATE: 20220622
